FAERS Safety Report 13622221 (Version 2)
Quarter: 2018Q2

REPORT INFORMATION
  Report Type: Spontaneous
  Country: US (occurrence: US)
  Receive Date: 20170607
  Receipt Date: 20180625
  Transmission Date: 20180711
  Serious: No
  Sender: FDA-Public Use
  Company Number: US-ROCHE-1918312

PATIENT
  Sex: Female

DRUGS (10)
  1. ALBUTEROL. [Concomitant]
     Active Substance: ALBUTEROL
  2. XELODA [Suspect]
     Active Substance: CAPECITABINE
     Indication: NEOPLASM MALIGNANT
     Dosage: 07 ON 7 DAY OFF
     Route: 048
     Dates: start: 20170225
  3. OXYCODONE [Concomitant]
     Active Substance: OXYCODONE
  4. PAROXETINE. [Concomitant]
     Active Substance: PAROXETINE
  5. ACYCLOVIR. [Concomitant]
     Active Substance: ACYCLOVIR
  6. ALPRAZOLAM. [Concomitant]
     Active Substance: ALPRAZOLAM
  7. PROCHLORPERAZINE MALEATE. [Concomitant]
     Active Substance: PROCHLORPERAZINE MALEATE
  8. IBU [Concomitant]
     Active Substance: IBUPROFEN
  9. FUROSEMIDE. [Concomitant]
     Active Substance: FUROSEMIDE
  10. LISINOPRIL. [Concomitant]
     Active Substance: LISINOPRIL

REACTIONS (7)
  - Bone pain [Unknown]
  - Cholelithiasis [Unknown]
  - Back pain [Unknown]
  - Renal disorder [Unknown]
  - Pigmentation disorder [Unknown]
  - Dyspnoea [Unknown]
  - Depression [Unknown]
